FAERS Safety Report 9022273 (Version 1)
Quarter: 2013Q1

REPORT INFORMATION
  Report Type: Report from Study
  Country: DE (occurrence: DE)
  Receive Date: 20130118
  Receipt Date: 20130118
  Transmission Date: 20140127
  Serious: Yes (Hospitalization)
  Sender: FDA-Public Use
  Company Number: PHHO2012DE017993

PATIENT
  Sex: Female
  Weight: 61 kg

DRUGS (4)
  1. EVEROLIMUS [Suspect]
     Indication: BREAST CANCER METASTATIC
     Dosage: 10 MG, ONCE/SINGLE
     Route: 048
     Dates: start: 20121031
  2. EXEMESTANE [Suspect]
     Indication: BREAST CANCER METASTATIC
     Dosage: 25 MG, ONCE/SINGLE
     Route: 048
     Dates: start: 20121031
  3. MIRTAZAPINE [Concomitant]
     Indication: DEPRESSION
     Dosage: 30 MG, UNK
     Route: 065
     Dates: start: 20121029
  4. IBANDRONATE [Concomitant]
     Dosage: UNK
     Dates: start: 20120530

REACTIONS (4)
  - Urinary tract infection [Unknown]
  - Dehydration [Unknown]
  - Depression [Not Recovered/Not Resolved]
  - Delusional disorder, unspecified type [Not Recovered/Not Resolved]
